FAERS Safety Report 10203603 (Version 2)
Quarter: 2014Q2

REPORT INFORMATION
  Report Type: Spontaneous
  Country: US (occurrence: None)
  Receive Date: 20140523
  Receipt Date: 20140602
  Transmission Date: 20141212
  Serious: Yes (Other)
  Sender: FDA-Public Use
  Company Number: LEVE20140006

PATIENT
  Age: 20 Year
  Sex: Female

DRUGS (2)
  1. LEVETIRACETAM [Suspect]
     Indication: EPILEPSY
     Dosage: UNK, UNK, ORAL
     Route: 048
  2. PHENYTOIN (PHENYTOIN) (UNKNOWN) (PHENYTOIN) [Suspect]
     Indication: EPILEPSY
     Dosage: UNK, UNK, UNKNOWN

REACTIONS (2)
  - Epilepsy [None]
  - Paradoxical drug reaction [None]
